FAERS Safety Report 4385769-7 (Version None)
Quarter: 2004Q2

REPORT INFORMATION
  Report Type: 
  Country: None (occurrence: None)
  Receive Date: 20040628
  Receipt Date: 20031230
  Transmission Date: 20050107
  Serious: Yes (Hospitalization)
  Sender: FDA-Public Use
  Company Number: FR-MERCK-0312FRA00088

PATIENT
  Age: 59 Year
  Sex: Female

DRUGS (2)
  1. CANDESARTAN CILEXETIL [Suspect]
     Indication: HYPERTENSION
     Route: 048
     Dates: end: 20020731
  2. VIOXX [Suspect]
     Route: 048
     Dates: end: 20020803

REACTIONS (3)
  - HYPOTENSION [None]
  - RENAL FAILURE ACUTE [None]
  - SOMNOLENCE [None]
